FAERS Safety Report 21247774 (Version 4)
Quarter: 2023Q2

REPORT INFORMATION
  Report Type: Spontaneous
  Country: CA (occurrence: CA)
  Receive Date: 20220824
  Receipt Date: 20230518
  Transmission Date: 20230721
  Serious: Yes (Other)
  Sender: FDA-Public Use
  Company Number: CA-ORGANON-O2208CAN001598

PATIENT

DRUGS (2)
  1. NEXPLANON [Suspect]
     Active Substance: ETONOGESTREL
     Indication: Product used for unknown indication
     Dosage: 1 IMPLANT
     Route: 059
     Dates: start: 20220812
  2. NEXPLANON [Suspect]
     Active Substance: ETONOGESTREL
     Dosage: 1 DOSAGE FORM; SINGLE USE APPLICATOR
     Route: 059

REACTIONS (3)
  - Device expulsion [Not Recovered/Not Resolved]
  - Implant site pain [Unknown]
  - Implant site erythema [Unknown]

NARRATIVE: CASE EVENT DATE: 20220801
